FAERS Safety Report 6647816-9 (Version None)
Quarter: 2010Q1

REPORT INFORMATION
  Report Type: 
  Country: None (occurrence: None)
  Receive Date: 20100318
  Receipt Date: 20100310
  Transmission Date: 20100710
  Serious: Yes (Death, Hospitalization, Other)
  Sender: FDA-Public Use
  Company Number: 2005-10-0305

PATIENT
  Age: 58 Year
  Sex: Female

DRUGS (13)
  1. TEMODAL [Suspect]
     Indication: GLIOMA
     Dosage: 140 MG; PO
     Route: 048
     Dates: start: 20050824, end: 20050925
  2. RADIATION THERAPY [Concomitant]
  3. MAREVAN [Concomitant]
  4. MEDROL [Concomitant]
  5. NEXIUM [Concomitant]
  6. TRIMONIL [Concomitant]
  7. BENSYLPENICILLIN [Concomitant]
  8. LAKTULOSE ^DAK^ [Concomitant]
  9. AFIPRAM (METOCLOPRAMIDE) [Concomitant]
  10. MYCOSTATIN [Concomitant]
  11. NEBCINA [Concomitant]
  12. ZOFRAN [Concomitant]
  13. PENICILLIN [Concomitant]

REACTIONS (10)
  - BONE MARROW FAILURE [None]
  - DISEASE PROGRESSION [None]
  - FALL [None]
  - GENERAL PHYSICAL HEALTH DETERIORATION [None]
  - HEAD INJURY [None]
  - MALIGNANT GLIOMA [None]
  - ORAL FUNGAL INFECTION [None]
  - SEPSIS [None]
  - TONSILLITIS [None]
  - TUMOUR HAEMORRHAGE [None]
